FAERS Safety Report 17537097 (Version 1)
Quarter: 2020Q1

REPORT INFORMATION
  Report Type: Spontaneous
  Country: PL (occurrence: PL)
  Receive Date: 20200313
  Receipt Date: 20200313
  Transmission Date: 20200409
  Serious: Yes (Other)
  Sender: FDA-Public Use
  Company Number: PL-GLAXOSMITHKLINE-PL2020EME042586

PATIENT
  Age: 42 Year
  Sex: Male

DRUGS (1)
  1. ZINAT [Suspect]
     Active Substance: CEFUROXIME AXETIL
     Indication: PAIN PROPHYLAXIS
     Dosage: UNK

REACTIONS (3)
  - Anaphylactic shock [Unknown]
  - Product use in unapproved indication [Unknown]
  - Loss of consciousness [Unknown]
